FAERS Safety Report 8491548-1 (Version None)
Quarter: 2012Q3

REPORT INFORMATION
  Report Type: 
  Country: None (occurrence: None)
  Receive Date: 20120706
  Receipt Date: 20120626
  Transmission Date: 20120928
  Serious: Yes (Other)
  Sender: FDA-Public Use
  Company Number: IT-JNJFOC-20120613928

PATIENT
  Age: 42 Year
  Sex: Female

DRUGS (10)
  1. MINIAS [Suspect]
     Indication: SELF INJURIOUS BEHAVIOUR
     Route: 048
     Dates: start: 20120626, end: 20120626
  2. ZOLOFT [Suspect]
     Indication: SELF INJURIOUS BEHAVIOUR
     Route: 048
     Dates: start: 20120626, end: 20120626
  3. AMITRIPTYLINE HCL [Suspect]
     Indication: SELF INJURIOUS BEHAVIOUR
     Route: 048
     Dates: start: 20120626, end: 20120626
  4. RAMIPRIL [Suspect]
     Indication: SELF INJURIOUS BEHAVIOUR
     Route: 048
     Dates: start: 20120626, end: 20120626
  5. ETHYL ALCOHOL [Suspect]
     Indication: SELF INJURIOUS BEHAVIOUR
     Route: 048
     Dates: start: 20120626, end: 20120626
  6. SEROQUEL [Suspect]
     Route: 048
     Dates: start: 20120626, end: 20120626
  7. TOPAMAX [Suspect]
     Route: 048
     Dates: start: 20120626, end: 20120626
  8. SEROQUEL [Suspect]
     Indication: SELF INJURIOUS BEHAVIOUR
     Route: 048
     Dates: start: 20120626, end: 20120626
  9. TOPAMAX [Suspect]
     Indication: PRODUCT USED FOR UNKNOWN INDICATION
     Route: 048
     Dates: start: 20120626, end: 20120626
  10. NEBIVOLOL [Suspect]
     Indication: SELF INJURIOUS BEHAVIOUR
     Route: 048
     Dates: start: 20120626, end: 20120626

REACTIONS (4)
  - SELF INJURIOUS BEHAVIOUR [None]
  - COMA [None]
  - PAIN [None]
  - MULTIPLE DRUG OVERDOSE INTENTIONAL [None]
